FAERS Safety Report 10043143 (Version 2)
Quarter: 2014Q2

REPORT INFORMATION
  Report Type: Spontaneous
  Country: US (occurrence: US)
  Receive Date: 20140328
  Receipt Date: 20140414
  Transmission Date: 20141212
  Serious: Yes (Other)
  Sender: FDA-Public Use
  Company Number: US-009507513-1403USA009546

PATIENT
  Age: 66 Year
  Sex: Male

DRUGS (3)
  1. TICE BCG LIVE [Suspect]
     Indication: BLADDER CANCER
     Dosage: UNK
     Route: 043
     Dates: start: 2009, end: 2009
  2. TICE BCG LIVE [Suspect]
     Dosage: UNK
     Route: 043
     Dates: start: 20140313, end: 20140313
  3. TICE BCG LIVE [Suspect]
     Dosage: UNK
     Route: 043
     Dates: start: 20140313, end: 20140313

REACTIONS (2)
  - Bladder cancer recurrent [Unknown]
  - Muscle spasms [Unknown]
